FAERS Safety Report 19565067 (Version 4)
Quarter: 2021Q3

REPORT INFORMATION
  Report Type: Spontaneous
  Country: JP (occurrence: JP)
  Receive Date: 20210716
  Receipt Date: 20210923
  Transmission Date: 20211014
  Serious: Yes (Other)
  Sender: FDA-Public Use
  Company Number: JP-PFIZER INC-2021823829

PATIENT
  Sex: Male

DRUGS (6)
  1. FUROSEMIDE. [Concomitant]
     Active Substance: FUROSEMIDE
     Dosage: UNK
  2. ROSUVASTATIN. [Concomitant]
     Active Substance: ROSUVASTATIN
     Dosage: UNK
  3. CALONAL [Concomitant]
     Active Substance: ACETAMINOPHEN
     Dosage: 3 DF
  4. SELARA [Suspect]
     Active Substance: EPLERENONE
     Indication: HYPERTENSION
     Dosage: 50 MG
     Route: 048
     Dates: start: 202012
  5. MUCOSTA [Concomitant]
     Active Substance: REBAMIPIDE
     Dosage: 3 DF
  6. SELARA [Suspect]
     Active Substance: EPLERENONE
     Dosage: 100 MG
     Route: 048

REACTIONS (11)
  - Disease recurrence [Unknown]
  - Blood chloride increased [Not Recovered/Not Resolved]
  - C-reactive protein increased [Not Recovered/Not Resolved]
  - Inappropriate schedule of product administration [Unknown]
  - Musculoskeletal stiffness [Unknown]
  - Pain in extremity [Recovering/Resolving]
  - Deep vein thrombosis [Unknown]
  - Fibrin D dimer increased [Not Recovered/Not Resolved]
  - Musculoskeletal pain [Unknown]
  - Oedema peripheral [Recovering/Resolving]
  - Arthritis [Unknown]
